FAERS Safety Report 7607287-2 (Version None)
Quarter: 2011Q3

REPORT INFORMATION
  Report Type: 
  Country: None (occurrence: None)
  Receive Date: 20110713
  Receipt Date: 20110701
  Transmission Date: 20111222
  Serious: Yes (Other)
  Sender: FDA-Public Use
  Company Number: PHHY2011MX59947

PATIENT
  Sex: Male

DRUGS (1)
  1. TRILEPTAL [Suspect]
     Indication: EPILEPSY
     Dosage: 10 ML, DAILY
     Dates: start: 20101101

REACTIONS (3)
  - MEMORY IMPAIRMENT [None]
  - CRYING [None]
  - ANGER [None]
